FAERS Safety Report 11294556 (Version 1)
Quarter: 2015Q3

REPORT INFORMATION
  Report Type: Spontaneous
  Country: None (occurrence: None)
  Receive Date: 20150721
  Receipt Date: 20150721
  Transmission Date: 20151125
  Serious: Yes (Other)
  Sender: FDA-Public Use
  Company Number: CO-PL-MX-2015-129

PATIENT
  Age: 54 Year
  Sex: Female

DRUGS (7)
  1. PARACETAMOL [Concomitant]
     Active Substance: ACETAMINOPHEN
  2. FOLIC ACID. [Concomitant]
     Active Substance: FOLIC ACID
  3. PLAQUENIL [Suspect]
     Active Substance: HYDROXYCHLOROQUINE SULFATE
     Indication: RHEUMATOID ARTHRITIS
     Route: 048
     Dates: start: 2014
  4. AZULFIDINE [Concomitant]
     Active Substance: SULFASALAZINE
  5. ARAVA [Suspect]
     Active Substance: LEFLUNOMIDE
     Indication: RHEUMATOID ARTHRITIS
     Dates: start: 2014, end: 201502
  6. CELEBREX [Concomitant]
     Active Substance: CELECOXIB
  7. PREDNISONE. [Concomitant]
     Active Substance: PREDNISONE

REACTIONS (1)
  - Rheumatoid arthritis [None]

NARRATIVE: CASE EVENT DATE: 201502
